FAERS Safety Report 15009526 (Version 2)
Quarter: 2018Q2

REPORT INFORMATION
  Report Type: Spontaneous
  Country: FR (occurrence: FR)
  Receive Date: 20180614
  Receipt Date: 20180619
  Transmission Date: 20180711
  Serious: Yes (Hospitalization)
  Sender: FDA-Public Use
  Company Number: FR-TEVA-2018-FR-906551

PATIENT
  Age: 21 Year
  Sex: Male
  Weight: 63.1 kg

DRUGS (2)
  1. METHOTREXATE. [Suspect]
     Active Substance: METHOTREXATE
     Indication: OSTEOSARCOMA
     Route: 042
     Dates: start: 20180228
  2. IFOSFAMIDE. [Suspect]
     Active Substance: IFOSFAMIDE
     Indication: OSTEOSARCOMA
     Route: 042
     Dates: start: 20180228, end: 20180329

REACTIONS (3)
  - Encephalopathy [Recovered/Resolved]
  - Hallucination, visual [Recovered/Resolved]
  - Hallucination, auditory [Recovered/Resolved]

NARRATIVE: CASE EVENT DATE: 20180328
